FAERS Safety Report 19729643 (Version 3)
Quarter: 2021Q3

REPORT INFORMATION
  Report Type: Other
  Country: US (occurrence: US)
  Receive Date: 20210821
  Receipt Date: 20210914
  Transmission Date: 20211014
  Serious: Yes (Hospitalization, Other)
  Sender: FDA-Public Use
  Company Number: US-ROCHE-2890379

PATIENT
  Age: 63 Year
  Sex: Female
  Weight: 83.99 kg

DRUGS (14)
  1. OCREVUS [Suspect]
     Active Substance: OCRELIZUMAB
     Indication: MULTIPLE SCLEROSIS
     Route: 042
     Dates: start: 2019
  2. RANEXA [Concomitant]
     Active Substance: RANOLAZINE
     Indication: PAIN
     Dosage: SOMETIMES 2 PER DAY
     Route: 048
     Dates: start: 2017
  3. COVID?19 VACCINE [Concomitant]
     Dates: start: 20210324
  4. DILTIAZEM. [Concomitant]
     Active Substance: DILTIAZEM
     Indication: HYPERTENSION
     Route: 048
     Dates: start: 2016
  5. VENLAFAXINE [Concomitant]
     Active Substance: VENLAFAXINE HYDROCHLORIDE
     Route: 048
     Dates: start: 2014
  6. POTASSIUM [Concomitant]
     Active Substance: POTASSIUM
     Dates: start: 20210806, end: 20210806
  7. VENLAFAXINE [Concomitant]
     Active Substance: VENLAFAXINE HYDROCHLORIDE
     Indication: CRYING
     Route: 048
  8. NEXIUM [Concomitant]
     Active Substance: ESOMEPRAZOLE MAGNESIUM
     Route: 048
     Dates: start: 2009
  9. TYLENOL [Concomitant]
     Active Substance: ACETAMINOPHEN
     Indication: CHILLS
  10. TYLENOL [Concomitant]
     Active Substance: ACETAMINOPHEN
     Indication: HYPERHIDROSIS
  11. MAGNESIUM [Concomitant]
     Active Substance: MAGNESIUM
     Dates: start: 20210806, end: 20210806
  12. RANEXA [Concomitant]
     Active Substance: RANOLAZINE
     Indication: PALPITATIONS
  13. RITUXAN [Suspect]
     Active Substance: RITUXIMAB
     Indication: MULTIPLE SCLEROSIS
     Dosage: RECEIVED THE 2 DOSES 2 WEEKS APART
     Route: 042
     Dates: start: 2014
  14. PRAVASTATIN. [Concomitant]
     Active Substance: PRAVASTATIN
     Route: 048
     Dates: start: 2019

REACTIONS (9)
  - Escherichia sepsis [Recovered/Resolved]
  - Off label use [Unknown]
  - Blood cholesterol abnormal [Not Recovered/Not Resolved]
  - Urinary tract infection [Recovered/Resolved]
  - Blood pressure increased [Not Recovered/Not Resolved]
  - Heart disease congenital [Not Recovered/Not Resolved]
  - Antibody test negative [Not Recovered/Not Resolved]
  - Headache [Unknown]
  - Sepsis [Recovered/Resolved]

NARRATIVE: CASE EVENT DATE: 2016
